FAERS Safety Report 25422712 (Version 1)
Quarter: 2025Q2

REPORT INFORMATION
  Report Type: Spontaneous
  Country: IT (occurrence: IT)
  Receive Date: 20250611
  Receipt Date: 20250611
  Transmission Date: 20250716
  Serious: Yes (Hospitalization, Other)
  Sender: AUROBINDO
  Company Number: IT-KRKA-IT2025K07603LIT

PATIENT
  Age: 37 Year
  Sex: Male

DRUGS (12)
  1. RAMIPRIL [Suspect]
     Active Substance: RAMIPRIL
     Indication: Hypertension
     Dosage: 5 MG, PER DAY
     Route: 065
     Dates: end: 2023
  2. BISOPROLOL [Suspect]
     Active Substance: BISOPROLOL
     Indication: Hypertension
     Dosage: 2.5 MG, PER DAY
     Route: 065
  3. BISOPROLOL [Suspect]
     Active Substance: BISOPROLOL
     Dosage: 15 MILLIGRAM, ONCE A DAY
     Route: 065
  4. AMLODIPINE [Suspect]
     Active Substance: AMLODIPINE BESYLATE
     Indication: Hypertension
     Dosage: 5 MG, PER DAY
     Route: 065
  5. AMLODIPINE [Suspect]
     Active Substance: AMLODIPINE BESYLATE
     Dosage: 10 MG, PER DAY
  6. DOXAZOSIN [Suspect]
     Active Substance: DOXAZOSIN MESYLATE
     Indication: Hypertension
     Dosage: 12 MG, PER DAY
     Route: 065
  7. DOXAZOSIN [Suspect]
     Active Substance: DOXAZOSIN MESYLATE
     Dosage: 20 MG, PER DAY
  8. SUNITINIB [Suspect]
     Active Substance: SUNITINIB
     Indication: Paraganglion neoplasm
     Dosage: 25 MG, PER DAY
     Route: 065
     Dates: start: 202303, end: 2023
  9. SUNITINIB [Suspect]
     Active Substance: SUNITINIB
     Dosage: 37.5 MG, PER DAY
  10. OCTREOTIDE [Suspect]
     Active Substance: OCTREOTIDE
     Indication: Paraganglion neoplasm
     Route: 065
     Dates: end: 2023
  11. LUTETIUM OXODOTREOTIDE LU-177 [Suspect]
     Active Substance: LUTETIUM OXODOTREOTIDE LU-177
     Indication: Paraganglion neoplasm
     Route: 065
     Dates: start: 202312, end: 202407
  12. EDOTREOTIDE YTTRIUM Y-90 [Suspect]
     Active Substance: EDOTREOTIDE YTTRIUM Y-90
     Indication: Paraganglion neoplasm
     Route: 065
     Dates: start: 202312, end: 202407

REACTIONS (4)
  - Drug resistance [Unknown]
  - Blood pressure increased [Unknown]
  - Drug ineffective [Recovering/Resolving]
  - Off label use [Unknown]
